FAERS Safety Report 7929114-6 (Version None)
Quarter: 2011Q4

REPORT INFORMATION
  Report Type: 
  Country: None (occurrence: None)
  Receive Date: 20111119
  Receipt Date: 20111111
  Transmission Date: 20120403
  Serious: Yes (Other)
  Sender: FDA-Public Use
  Company Number: US-ASTRAZENECA-2011SE69060

PATIENT
  Age: 49 Year
  Sex: Female

DRUGS (2)
  1. SYMBICORT [Concomitant]
  2. NEXIUM [Suspect]
     Route: 048

REACTIONS (4)
  - INTERVERTEBRAL DISC DISORDER [None]
  - SPINAL COLUMN STENOSIS [None]
  - ANXIETY [None]
  - CHRONIC OBSTRUCTIVE PULMONARY DISEASE [None]
